FAERS Safety Report 11947428 (Version 1)
Quarter: 2016Q1

REPORT INFORMATION
  Report Type: Spontaneous
  Country: US (occurrence: US)
  Receive Date: 20160125
  Receipt Date: 20160125
  Transmission Date: 20160526
  Serious: No
  Sender: FDA-Public Use
  Company Number: US-JNJFOC-20160108139

PATIENT
  Age: 75 Year
  Sex: Female
  Weight: 50.35 kg

DRUGS (7)
  1. CALCIUM [Concomitant]
     Active Substance: CALCIUM
     Indication: OSTEOPOROSIS
     Route: 065
  2. ALL OTHER THERAPEUTIC PRODUCTS [Concomitant]
     Active Substance: UNSPECIFIED INGREDIENT
     Route: 061
  3. WOMENS ROGAINE [Suspect]
     Active Substance: MINOXIDIL
     Indication: ALOPECIA
     Dosage: SPRAYING IT ON
     Route: 061
  4. BIOTIN [Concomitant]
     Active Substance: BIOTIN
     Indication: UNEVALUABLE EVENT
     Route: 065
  5. LUTEINE [Concomitant]
     Indication: EYE DISORDER
     Route: 065
  6. WOMENS ROGAINE [Suspect]
     Active Substance: MINOXIDIL
     Route: 061
  7. MULTIVITAMINS [Concomitant]
     Active Substance: VITAMINS
     Indication: ROUTINE HEALTH MAINTENANCE
     Route: 065

REACTIONS (5)
  - Off label use [Unknown]
  - Product use issue [Unknown]
  - Alopecia [Unknown]
  - Wrong technique in product usage process [Unknown]
  - Contraindicated drug administered [Unknown]

NARRATIVE: CASE EVENT DATE: 20160111
